FAERS Safety Report 8771380 (Version 5)
Quarter: 2015Q2

REPORT INFORMATION
  Report Type: Spontaneous
  Country: US (occurrence: US)
  Receive Date: 20120905
  Receipt Date: 20150401
  Transmission Date: 20150821
  Serious: No
  Sender: FDA-Public Use
  Company Number: US-009507513-1209USA000782

PATIENT
  Sex: Male
  Weight: 113.38 kg

DRUGS (2)
  1. PROPECIA [Suspect]
     Active Substance: FINASTERIDE
     Indication: ALOPECIA
     Dosage: 1 MG QD
     Route: 048
     Dates: start: 20050511, end: 20100317
  2. PROPECIA [Suspect]
     Active Substance: FINASTERIDE
     Dosage: 1 MG, QD
     Route: 048
     Dates: start: 2010, end: 201204

REACTIONS (20)
  - Asthma [Unknown]
  - Umbilical hernia [Unknown]
  - Talipes [Unknown]
  - Foot deformity [Unknown]
  - Nasal turbinate hypertrophy [Unknown]
  - Plantar fasciitis [Unknown]
  - Metatarsalgia [Unknown]
  - Myofascial pain syndrome [Unknown]
  - Gastrointestinal tract adenoma [Unknown]
  - Perineal pain [Recovered/Resolved]
  - Nasal septum deviation [Unknown]
  - Temporomandibular joint syndrome [Unknown]
  - Large intestine polyp [Unknown]
  - Sexual dysfunction [Unknown]
  - Tendonitis [Unknown]
  - Cognitive disorder [Unknown]
  - Scar [Unknown]
  - Sleep apnoea syndrome [Unknown]
  - Attention deficit/hyperactivity disorder [Unknown]
  - Erectile dysfunction [Not Recovered/Not Resolved]

NARRATIVE: CASE EVENT DATE: 2010
